FAERS Safety Report 4764252-0 (Version None)
Quarter: 2005Q3

REPORT INFORMATION
  Report Type: 
  Country: None (occurrence: None)
  Receive Date: 20050907
  Receipt Date: 20050816
  Transmission Date: 20060218
  Serious: Yes (Hospitalization)
  Sender: FDA-Public Use
  Company Number: 217318

PATIENT
  Sex: Female
  Weight: 36 kg

DRUGS (5)
  1. AVASTIN [Suspect]
     Indication: COLORECTAL CANCER METASTATIC
     Dosage: 270 MG, Q3W, INTRAVENOUS
     Route: 042
     Dates: start: 20050805, end: 20050812
  2. MUCAINE (OXETHAZAINE, ALUMINUM HYDROXIDE, MAGENESIUM HYDROXIDE) [Concomitant]
  3. MOUTHWASH NOS (MOUTHWASH NOS) [Concomitant]
  4. MULTIVITAMIN (MULTIVITAMINS NOS) [Concomitant]
  5. PROXYVON (ACETAMINOPHEN, PROPOXYPHENE HYDROCHLORIDE) [Concomitant]

REACTIONS (1)
  - DEEP VEIN THROMBOSIS [None]
